FAERS Safety Report 24717551 (Version 1)
Quarter: 2024Q4

REPORT INFORMATION
  Report Type: Spontaneous
  Country: CN (occurrence: CN)
  Receive Date: 20241210
  Receipt Date: 20241210
  Transmission Date: 20250114
  Serious: Yes (Hospitalization)
  Sender: ELI LILLY AND COMPANY
  Company Number: CN-Merck Healthcare KGaA-2024063675

PATIENT
  Age: 54 Year
  Sex: Male
  Weight: 45 kg

DRUGS (2)
  1. ERBITUX [Suspect]
     Active Substance: CETUXIMAB
     Indication: Hypopharyngeal cancer
     Dosage: 375 MG, UNK
     Route: 041
     Dates: start: 20240813, end: 20241119
  2. SODIUM CHLORIDE [Concomitant]
     Active Substance: SODIUM CHLORIDE
     Indication: Medication dilution
     Dosage: 250 ML, UNK
     Route: 041
     Dates: start: 20240813, end: 20241119

REACTIONS (2)
  - Transaminases increased [Unknown]
  - Asthenia [Unknown]

NARRATIVE: CASE EVENT DATE: 20241119
